FAERS Safety Report 10063335 (Version 1)
Quarter: 2014Q2

REPORT INFORMATION
  Report Type: Spontaneous
  Country: US (occurrence: US)
  Receive Date: 20140407
  Receipt Date: 20140407
  Transmission Date: 20141212
  Serious: Yes (Hospitalization)
  Sender: FDA-Public Use
  Company Number: US-INCYTE CORPORATION-2014IN000909

PATIENT
  Sex: Female

DRUGS (1)
  1. JAKAFI [Suspect]
     Indication: LEUKAEMIA
     Dosage: 20 MG, BID
     Route: 048

REACTIONS (2)
  - Myocardial infarction [Unknown]
  - Herpes zoster [Unknown]
